FAERS Safety Report 15894790 (Version 2)
Quarter: 2019Q1

REPORT INFORMATION
  Report Type: Spontaneous
  Country: US (occurrence: US)
  Receive Date: 20190131
  Receipt Date: 20190312
  Transmission Date: 20190417
  Serious: No
  Sender: FDA-Public Use
  Company Number: US-PFIZER INC-2019043797

PATIENT

DRUGS (2)
  1. DOCETAXEL. [Suspect]
     Active Substance: DOCETAXEL
     Dosage: UNK
     Dates: start: 20130822, end: 20131212
  2. TAXOTERE [Suspect]
     Active Substance: DOCETAXEL
     Dosage: UNK
     Dates: start: 20130822, end: 20131212

REACTIONS (5)
  - Quality of life decreased [Unknown]
  - Alopecia [Unknown]
  - Discomfort [Unknown]
  - Anxiety [Unknown]
  - Emotional distress [Unknown]
